FAERS Safety Report 4462733-0 (Version None)
Quarter: 2004Q3

REPORT INFORMATION
  Report Type: 
  Country: None (occurrence: None)
  Receive Date: 20040930
  Receipt Date: 20040920
  Transmission Date: 20050211
  Serious: Yes (Other)
  Sender: FDA-Public Use
  Company Number: ES-JNJFOC-20040906858

PATIENT
  Age: 27 Year
  Sex: Female

DRUGS (5)
  1. REMICADE [Suspect]
     Indication: DRUG USE FOR UNKNOWN INDICATION
     Dosage: 3 DOSES
     Route: 042
  2. METHOTREXATE [Concomitant]
     Route: 049
  3. KETOPROFEN [Concomitant]
     Route: 049
  4. SALAZOPYRIN [Concomitant]
     Route: 049
  5. CORTICOID [Concomitant]
     Route: 049

REACTIONS (3)
  - ALOPECIA [None]
  - ECZEMA [None]
  - TOXIC SKIN ERUPTION [None]
